FAERS Safety Report 6359110-4 (Version None)
Quarter: 2009Q3

REPORT INFORMATION
  Report Type: 
  Country: None (occurrence: None)
  Receive Date: 20090917
  Receipt Date: 20071119
  Transmission Date: 20100115
  Serious: Yes (Other)
  Sender: FDA-Public Use
  Company Number: US-ASTRAZENECA-2007UW14066

PATIENT
  Age: 50 Year
  Sex: Female
  Weight: 81.2 kg

DRUGS (19)
  1. SEROQUEL [Suspect]
     Indication: DEPRESSION
     Route: 048
     Dates: start: 19990616, end: 20041228
  2. LYRICA [Concomitant]
     Indication: PERIPHERAL SENSORY NEUROPATHY
     Dosage: 150-300 MG
     Dates: start: 20060117
  3. EFFEXOR [Concomitant]
     Dosage: 75-225 MG, DAILY
     Dates: start: 20050101
  4. XENICAL [Concomitant]
     Route: 048
     Dates: start: 20040101, end: 20040802
  5. XENICAL [Concomitant]
     Route: 048
     Dates: start: 20050101
  6. LORCET-HD [Concomitant]
     Indication: PAIN
     Dosage: 20-120 MG ONE EVERY SIX HOURS, 7.5/650, EVERY FOUR HOURS
     Route: 048
     Dates: start: 20050101
  7. FLEXERIL [Concomitant]
     Indication: MUSCLE SPASMS
     Dates: start: 20040101
  8. BENICAR [Concomitant]
     Indication: BLOOD PRESSURE
     Dosage: 20-40 MG ONCE A DAY, 40/25 DAILY
     Route: 048
     Dates: start: 20010101
  9. PLAVIX [Concomitant]
     Route: 048
     Dates: start: 20060101
  10. CADUET [Concomitant]
     Dosage: 5/40 AT BED TIME
     Route: 048
     Dates: start: 20060101
  11. FUROSEMIDE [Concomitant]
     Dosage: 20 MG, ONE TO TWO DAILY
     Route: 048
     Dates: start: 20030101, end: 20040614
  12. GLUCOPHAGE [Concomitant]
     Dosage: 1000-1500 MG
     Dates: start: 20050101
  13. PROTONIX [Concomitant]
     Dates: start: 20030101
  14. AVALIDE [Concomitant]
     Indication: HYPERTENSION
     Dosage: 150 MG DAILY, 300/12.5 DAILY
     Dates: start: 20030101
  15. PEPCID [Concomitant]
     Dates: start: 20050101
  16. NEXIUM [Concomitant]
     Dates: start: 20030101
  17. TRAZODONE [Concomitant]
     Dates: start: 20050101
  18. METOPROLOL TARTRATE [Concomitant]
     Route: 048
     Dates: start: 20050923
  19. LORAZEPAM [Concomitant]
     Indication: ANXIETY
     Dates: start: 20060101

REACTIONS (7)
  - DIABETES MELLITUS INADEQUATE CONTROL [None]
  - DIABETIC GASTROPARESIS [None]
  - GLUCOSE TOLERANCE IMPAIRED [None]
  - HYPOGLYCAEMIA [None]
  - NEUROPATHY PERIPHERAL [None]
  - TYPE 2 DIABETES MELLITUS [None]
  - VISION BLURRED [None]
